FAERS Safety Report 18962699 (Version 1)
Quarter: 2021Q1

REPORT INFORMATION
  Report Type: Spontaneous
  Country: US (occurrence: US)
  Receive Date: 20210302
  Receipt Date: 20210302
  Transmission Date: 20210420
  Serious: Yes (Disabling)
  Sender: FDA-Public Use
  Company Number: None

PATIENT
  Age: 44 Year
  Sex: Female
  Weight: 130.5 kg

DRUGS (9)
  1. VITAMINS [Concomitant]
     Active Substance: VITAMINS
  2. KLONOPIN [Suspect]
     Active Substance: CLONAZEPAM
     Indication: PRODUCT USED FOR UNKNOWN INDICATION
     Route: 048
     Dates: start: 20201215, end: 20210101
  3. VITAMIN C [Concomitant]
     Active Substance: ASCORBIC ACID
  4. INVEGA [Suspect]
     Active Substance: PALIPERIDONE
  5. VITAMIN D [Concomitant]
     Active Substance: VITAMIN D NOS
  6. RISPERIDONE. [Suspect]
     Active Substance: RISPERIDONE
  7. MIRENA [Suspect]
     Active Substance: LEVONORGESTREL
  8. IRON [Concomitant]
     Active Substance: IRON
  9. DEPAKOTE [Suspect]
     Active Substance: DIVALPROEX SODIUM

REACTIONS (4)
  - Weight increased [None]
  - Emotional disorder [None]
  - Unevaluable event [None]
  - Weight loss poor [None]

NARRATIVE: CASE EVENT DATE: 20210101
